FAERS Safety Report 21687496 (Version 1)
Quarter: 2022Q4

REPORT INFORMATION
  Report Type: Spontaneous
  Country: US (occurrence: None)
  Receive Date: 20221205
  Receipt Date: 20221205
  Transmission Date: 20230113
  Serious: No
  Sender: FDA-Public Use
  Company Number: None

PATIENT
  Age: 55 Year
  Sex: Male
  Weight: 94.5 kg

DRUGS (1)
  1. LEXAPRO [Suspect]
     Active Substance: ESCITALOPRAM OXALATE
     Indication: Anxiety
     Dates: start: 20210201, end: 20210201

REACTIONS (3)
  - Sexual dysfunction [None]
  - Therapy cessation [None]
  - Sexual dysfunction [None]

NARRATIVE: CASE EVENT DATE: 20220201
